FAERS Safety Report 17685799 (Version 1)
Quarter: 2020Q2

REPORT INFORMATION
  Report Type: Report from Study
  Country: US (occurrence: US)
  Receive Date: 20200420
  Receipt Date: 20200420
  Transmission Date: 20200714
  Serious: Yes (Hospitalization, Other)
  Sender: FDA-Public Use
  Company Number: US-GLAXOSMITHKLINE-US2020GSK067805

PATIENT
  Age: 54 Year
  Sex: Female

DRUGS (1)
  1. ROLAPITANT HYDROCHLORIDE [Suspect]
     Active Substance: ROLAPITANT
     Indication: OVARIAN CANCER
     Dosage: 2 DF, (180 MG BY MOUTH EVERY 3 WEEKS)
     Route: 048
     Dates: start: 20200303

REACTIONS (2)
  - Sepsis [Unknown]
  - Pain [Not Recovered/Not Resolved]

NARRATIVE: CASE EVENT DATE: 202003
